FAERS Safety Report 5014802-4 (Version None)
Quarter: 2006Q2

REPORT INFORMATION
  Report Type: 
  Country: None (occurrence: None)
  Receive Date: 20060424
  Receipt Date: 20050331
  Transmission Date: 20061013
  Serious: Yes (Other)
  Sender: FDA-Public Use
  Company Number: WAES 0504USA00054

PATIENT
  Age: 7 Year
  Sex: Female
  Weight: 26.7622 kg

DRUGS (5)
  1. SINGULAIR [Suspect]
     Indication: ASTHMA
     Dosage: 5 MG/DAILY/PO
     Route: 048
     Dates: end: 20050330
  2. SINGULAIR [Suspect]
     Indication: RHINITIS ALLERGIC
     Dosage: 5 MG/DAILY/PO
     Route: 048
     Dates: end: 20050330
  3. ZYRTEC [Concomitant]
  4. [THERAPY UNSPECIFIED] [Concomitant]
  5. ALBUTEROL SPIROS [Concomitant]

REACTIONS (3)
  - MEDICATION ERROR [None]
  - RASH [None]
  - URTICARIA [None]
